FAERS Safety Report 8177809-4 (Version None)
Quarter: 2012Q1

REPORT INFORMATION
  Report Type: 
  Country: None (occurrence: None)
  Receive Date: 20120301
  Receipt Date: 20120227
  Transmission Date: 20120608
  Serious: Yes (Other)
  Sender: FDA-Public Use
  Company Number: US-PFIZER INC-2012031720

PATIENT

DRUGS (2)
  1. LYRICA [Suspect]
     Indication: ARTHRITIS
     Dosage: UNK
  2. LYRICA [Suspect]
     Indication: FIBROMYALGIA

REACTIONS (2)
  - GASTROOESOPHAGEAL REFLUX DISEASE [None]
  - PYLORIC STENOSIS [None]
